FAERS Safety Report 12788971 (Version 1)
Quarter: 2016Q3

REPORT INFORMATION
  Report Type: Spontaneous
  Country: JP (occurrence: JP)
  Receive Date: 20160928
  Receipt Date: 20160928
  Transmission Date: 20161109
  Serious: Yes (Other)
  Sender: FDA-Public Use
  Company Number: JP-JNJFOC-20160924220

PATIENT
  Sex: Male

DRUGS (1)
  1. ZYTIGA [Suspect]
     Active Substance: ABIRATERONE ACETATE
     Indication: HORMONE-REFRACTORY PROSTATE CANCER
     Route: 048
     Dates: start: 201409, end: 201506

REACTIONS (8)
  - Decreased appetite [Unknown]
  - Hepatic function abnormal [Unknown]
  - Oedema [Unknown]
  - Fatigue [Unknown]
  - Somnolence [Unknown]
  - Cellulitis [Unknown]
  - Weight decreased [Unknown]
  - Malaise [Unknown]
